FAERS Safety Report 8314038 (Version 2)
Quarter: 2012Q4

REPORT INFORMATION
  Report Type: Report from Study
  Country: FR (occurrence: FR)
  Receive Date: 20111228
  Receipt Date: 20121211
  Transmission Date: 20130627
  Serious: Yes (Life-Threatening)
  Sender: FDA-Public Use
  Company Number: FR-ELI_LILLY_AND_COMPANY-FR201112004868

PATIENT
  Age: 47 Year
  Sex: Male
  Weight: 92 kg

DRUGS (13)
  1. GEMCITABINE HYDROCHLORIDE [Suspect]
     Indication: NON-SMALL CELL LUNG CANCER
     Dosage: 1900 mg, UNK
     Route: 042
     Dates: start: 20110905, end: 20111114
  2. GEMCITABINE HYDROCHLORIDE [Suspect]
     Dosage: UNK
     Dates: start: 20111212
  3. CISPLATIN [Suspect]
     Indication: NON-SMALL CELL LUNG CANCER
     Dosage: 115 mg, UNK
     Route: 042
     Dates: start: 20110905, end: 20111114
  4. CISPLATIN [Suspect]
     Dosage: UNK
     Dates: start: 20111212
  5. LIPANTHYL [Concomitant]
     Dosage: UNK
  6. SKENAN [Concomitant]
     Dosage: UNK
     Dates: start: 20111102
  7. STILNOX [Concomitant]
     Dosage: UNK
     Dates: start: 20111102
  8. ACTISKENAN [Concomitant]
     Dosage: UNK
     Dates: start: 20111102
  9. LACTULOSE [Concomitant]
     Dosage: UNK
     Dates: start: 20111130
  10. PARACETAMOL [Concomitant]
     Dosage: UNK
     Dates: start: 20111123
  11. LANSOPRAZOLE [Concomitant]
     Dosage: UNK
     Dates: start: 20111215
  12. LOXEN [Concomitant]
     Dosage: UNK
     Dates: start: 20111215
  13. FORLAX [Concomitant]
     Dosage: UNK
     Dates: start: 20111130

REACTIONS (1)
  - Neutropenia [Recovered/Resolved]
